FAERS Safety Report 10204025 (Version 1)
Quarter: 2014Q2

REPORT INFORMATION
  Report Type: Spontaneous
  Country: DE (occurrence: DE)
  Receive Date: 20140529
  Receipt Date: 20140529
  Transmission Date: 20141212
  Serious: Yes (Other)
  Sender: FDA-Public Use
  Company Number: DE-PFIZER INC-2014145492

PATIENT
  Age: 58 Year
  Sex: Female

DRUGS (2)
  1. LYRICA [Suspect]
     Indication: NERVE INJURY
     Dosage: 50 MG, DAILY
  2. RASILEZ [Suspect]
     Indication: HYPERTENSION
     Dosage: 150 MG, 1X/DAY
     Dates: start: 20140414

REACTIONS (4)
  - Polyneuropathy [Unknown]
  - Paraesthesia [Unknown]
  - Pain [Unknown]
  - Muscle spasms [Unknown]
